FAERS Safety Report 5101954-0 (Version None)
Quarter: 2006Q3

REPORT INFORMATION
  Report Type: 
  Country: None (occurrence: None)
  Receive Date: 20060907
  Receipt Date: 20060828
  Transmission Date: 20061208
  Serious: Yes (Other)
  Sender: FDA-Public Use
  Company Number: 229220

PATIENT
  Age: 59 Year
  Sex: Female

DRUGS (7)
  1. XOLAIR [Suspect]
     Indication: ASTHMA
     Dosage: 1/MONTH
     Dates: start: 20040301
  2. SINGULAIR [Concomitant]
  3. ZYRTEC [Concomitant]
  4. AEROBID [Concomitant]
  5. ASACOL [Concomitant]
  6. EFFEXOR [Concomitant]
  7. VICODIN EXTRA STRENGTH (ACETAMINOPHEN, HYDROCODONE BITARTRATE) [Concomitant]

REACTIONS (6)
  - BREAST MASS [None]
  - HYPOAESTHESIA [None]
  - LYMPHADENOPATHY [None]
  - OEDEMA PERIPHERAL [None]
  - PAIN [None]
  - PARAESTHESIA [None]
